FAERS Safety Report 6298437-1 (Version None)
Quarter: 2009Q3

REPORT INFORMATION
  Report Type: 
  Country: None (occurrence: None)
  Receive Date: 20090805
  Receipt Date: 20090729
  Transmission Date: 20100115
  Serious: Yes (Hospitalization)
  Sender: FDA-Public Use
  Company Number: US-CELGENEUS-163-21880-09072225

PATIENT
  Sex: Female
  Weight: 94.432 kg

DRUGS (3)
  1. REVLIMID [Suspect]
     Route: 048
     Dates: start: 20090608, end: 20090720
  2. GEMCITABINE [Suspect]
     Route: 051
     Dates: start: 20090608, end: 20090720
  3. OXYGEN [Concomitant]
     Indication: DRUG USE FOR UNKNOWN INDICATION
     Dosage: 2 LITERS
     Route: 065

REACTIONS (4)
  - ASTHENIA [None]
  - DEHYDRATION [None]
  - HYPERMAGNESAEMIA [None]
  - HYPONATRAEMIA [None]
